FAERS Safety Report 5375933-2 (Version None)
Quarter: 2007Q3

REPORT INFORMATION
  Report Type: 
  Country: None (occurrence: None)
  Receive Date: 20070702
  Receipt Date: 20070626
  Transmission Date: 20080115
  Serious: Yes (Life-Threatening)
  Sender: FDA-Public Use
  Company Number: NL-NOVOPROD-264913

PATIENT
  Age: 60 Year
  Sex: Female
  Weight: 100 kg

DRUGS (3)
  1. NOVORAPID PENFILL [Suspect]
     Indication: TYPE 1 DIABETES MELLITUS
     Dosage: 16 IU, UNK
     Dates: start: 20070323
  2. HUMIRA [Suspect]
     Indication: DRUG USE FOR UNKNOWN INDICATION
  3. INSULIN GLARGINE [Suspect]
     Indication: DRUG USE FOR UNKNOWN INDICATION

REACTIONS (2)
  - DRUG INTERACTION [None]
  - HYPOGLYCAEMIA [None]
